FAERS Safety Report 4685111-8 (Version None)
Quarter: 2005Q2

REPORT INFORMATION
  Report Type: 
  Country: None (occurrence: None)
  Receive Date: 20050608
  Receipt Date: 20050527
  Transmission Date: 20051028
  Serious: Yes (Hospitalization)
  Sender: FDA-Public Use
  Company Number: IT-JNJFOC-20040909123

PATIENT
  Sex: Male
  Weight: 100 kg

DRUGS (8)
  1. REOPRO [Suspect]
     Dosage: 04.0 ML IN 250 ML DILUENT AT 19.0 ML/H
     Route: 042
  2. REOPRO [Suspect]
     Indication: ACUTE MYOCARDIAL INFARCTION
     Route: 042
  3. RETEPLASE [Suspect]
     Indication: ACUTE MYOCARDIAL INFARCTION
     Route: 042
  4. ASPIRIN [Concomitant]
  5. ACE INHIBITOR NOS [Concomitant]
  6. BETA-BLOCKERS [Concomitant]
  7. STATINS [Concomitant]
  8. HEPARIN [Concomitant]

REACTIONS (3)
  - DRUG INTERACTION [None]
  - MYOCARDIAL ISCHAEMIA [None]
  - PLATELET COUNT DECREASED [None]
